FAERS Safety Report 14006584 (Version 2)
Quarter: 2017Q4

REPORT INFORMATION
  Report Type: Spontaneous
  Country: US (occurrence: US)
  Receive Date: 20170925
  Receipt Date: 20171002
  Transmission Date: 20180321
  Serious: Yes (Hospitalization, Other)
  Sender: FDA-Public Use
  Company Number: US-ROCHE-1995939

PATIENT
  Age: 64 Year
  Sex: Female

DRUGS (2)
  1. PARNATE [Concomitant]
     Active Substance: TRANYLCYPROMINE SULFATE
  2. VALIUM [Suspect]
     Active Substance: DIAZEPAM
     Indication: PRODUCT USED FOR UNKNOWN INDICATION
     Route: 065

REACTIONS (6)
  - Upper limb fracture [Unknown]
  - Schizophrenia [Unknown]
  - Cerebrovascular accident [Unknown]
  - Hand fracture [Unknown]
  - Fall [Unknown]
  - Dementia [Unknown]
